FAERS Safety Report 4348546-9 (Version None)
Quarter: 2004Q2

REPORT INFORMATION
  Report Type: 
  Country: None (occurrence: None)
  Receive Date: 20040422
  Receipt Date: 20040413
  Transmission Date: 20050107
  Serious: Yes (Other)
  Sender: FDA-Public Use
  Company Number: 2004-04-0347

PATIENT
  Age: 29 Year
  Sex: Female
  Weight: 47 kg

DRUGS (2)
  1. INTRON A [Suspect]
     Indication: DIFFUSE LARGE B-CELL LYMPHOMA
     Dosage: SEE IMAGE
     Route: 030
  2. RADIATION THERAPY [Suspect]
     Indication: DIFFUSE LARGE B-CELL LYMPHOMA
     Dosage: 2 GY DYS22-58 X-RAY THER

REACTIONS (7)
  - PERICARDIAL EFFUSION [None]
  - PNEUMONIA [None]
  - PYREXIA [None]
  - RADIATION INJURY [None]
  - RADIATION PERICARDITIS [None]
  - RASH [None]
  - STEM CELL TRANSPLANT [None]
